FAERS Safety Report 8880819 (Version 3)
Quarter: 2013Q2

REPORT INFORMATION
  Report Type: Spontaneous
  Country: US (occurrence: US)
  Receive Date: 20121101
  Receipt Date: 20130606
  Transmission Date: 20140414
  Serious: Yes (Hospitalization)
  Sender: FDA-Public Use
  Company Number: US-GILEAD-2012-0063759

PATIENT
  Age: 66 Year
  Sex: Male

DRUGS (3)
  1. LETAIRIS [Suspect]
     Indication: PULMONARY HYPERTENSION
     Dosage: 10 MG, UNK
     Route: 048
     Dates: start: 20120113
  2. LETAIRIS [Suspect]
     Indication: PORTAL HYPERTENSION
     Dates: start: 20130507
  3. LETAIRIS [Suspect]
     Indication: HEPATIC CIRRHOSIS

REACTIONS (7)
  - Ammonia increased [Unknown]
  - Balance disorder [Unknown]
  - Confusional state [Unknown]
  - Abdominal cavity drainage [Unknown]
  - Liver disorder [Unknown]
  - Renal disorder [Unknown]
  - Gait disturbance [Unknown]
